FAERS Safety Report 16581508 (Version 1)
Quarter: 2019Q3

REPORT INFORMATION
  Report Type: Spontaneous
  Country: US (occurrence: US)
  Receive Date: 20190716
  Receipt Date: 20190716
  Transmission Date: 20191004
  Serious: No
  Sender: FDA-Public Use
  Company Number: US-CHILTERN-US-2019-000514

PATIENT
  Age: 68 Year
  Sex: Male

DRUGS (2)
  1. VYZULTA [Concomitant]
     Active Substance: LATANOPROSTENE BUNOD
     Indication: OPEN ANGLE GLAUCOMA
     Dosage: 2 GTT, QD
     Route: 047
     Dates: start: 20180507
  2. RHOPRESSA [Suspect]
     Active Substance: NETARSUDIL MESYLATE
     Indication: OPEN ANGLE GLAUCOMA
     Dosage: 1 GTT, QD LEFT EYE NIGHTLY
     Route: 047
     Dates: start: 20181021, end: 20190217

REACTIONS (2)
  - Conjunctivitis allergic [Recovered/Resolved]
  - Blepharitis allergic [Recovered/Resolved]

NARRATIVE: CASE EVENT DATE: 20190103
